FAERS Safety Report 7092382-X (Version None)
Quarter: 2010Q4

REPORT INFORMATION
  Report Type: 
  Country: None (occurrence: None)
  Receive Date: 20101110
  Receipt Date: 20101103
  Transmission Date: 20110411
  Serious: Yes (Hospitalization)
  Sender: FDA-Public Use
  Company Number: US-BIOGENIDEC-2010BI022160

PATIENT
  Age: 44 Year
  Sex: Female

DRUGS (2)
  1. AVONEX [Suspect]
     Indication: MULTIPLE SCLEROSIS
     Route: 030
     Dates: start: 20080301, end: 20100101
  2. AVONEX [Suspect]
     Route: 030
     Dates: start: 20100323, end: 20100721

REACTIONS (5)
  - ADVERSE DRUG REACTION [None]
  - ASTHENIA [None]
  - BLOOD DISORDER [None]
  - BREAST CANCER STAGE III [None]
  - HAEMOGLOBIN DECREASED [None]
